FAERS Safety Report 6133761-4 (Version None)
Quarter: 2009Q1

REPORT INFORMATION
  Report Type: 
  Country: None (occurrence: None)
  Receive Date: 20090326
  Receipt Date: 20090316
  Transmission Date: 20090719
  Serious: Yes (Other)
  Sender: FDA-Public Use
  Company Number: US-PFIZER INC-2009183566

PATIENT
  Age: 68 Year
  Sex: Female

DRUGS (5)
  1. LIPITOR [Suspect]
     Route: 048
  2. EXCEDRIN (MIGRAINE) [Suspect]
     Indication: ARTHRALGIA
     Dosage: 2 DF
     Route: 048
     Dates: end: 20090306
  3. EXCEDRIN (MIGRAINE) [Suspect]
     Indication: HEADACHE
     Dosage: 6 DF, 1X/DAY
     Route: 048
  4. EXCEDRIN (MIGRAINE) [Suspect]
     Indication: MIGRAINE
     Dosage: 2-4 CAPLETS IN A DAY
     Route: 048
  5. CRESTOR [Concomitant]

REACTIONS (9)
  - ARTHRALGIA [None]
  - DRUG HYPERSENSITIVITY [None]
  - HERNIA HIATUS REPAIR [None]
  - HYPERSENSITIVITY [None]
  - INTENTIONAL DRUG MISUSE [None]
  - MIGRAINE [None]
  - SWOLLEN TONGUE [None]
  - TONGUE HAEMORRHAGE [None]
  - TONGUE INJURY [None]
